FAERS Safety Report 10709400 (Version 1)
Quarter: 2015Q1

REPORT INFORMATION
  Report Type: Spontaneous
  Country: US (occurrence: None)
  Receive Date: 20150113
  Receipt Date: 20150113
  Transmission Date: 20150721
  Serious: Yes (Hospitalization)
  Sender: FDA-Public Use
  Company Number: None

PATIENT
  Age: 56 Year
  Sex: Male
  Weight: 95.44 kg

DRUGS (4)
  1. ADVIL [Concomitant]
     Active Substance: IBUPROFEN
  2. LISINOPRIL. [Concomitant]
     Active Substance: LISINOPRIL
  3. CHANTIX [Suspect]
     Active Substance: VARENICLINE TARTRATE
     Dates: start: 20140616, end: 20140913
  4. OMEPRAZOLE. [Concomitant]
     Active Substance: OMEPRAZOLE

REACTIONS (2)
  - Syncope [None]
  - Seizure [None]

NARRATIVE: CASE EVENT DATE: 20140913
